FAERS Safety Report 23257747 (Version 1)
Quarter: 2023Q4

REPORT INFORMATION
  Report Type: Spontaneous
  Country: CH (occurrence: None)
  Receive Date: 20231129
  Receipt Date: 20231129
  Transmission Date: 20240110
  Serious: Yes (Hospitalization, Disabling)
  Sender: FDA-Public Use
  Company Number: None

PATIENT
  Age: 39 Year
  Sex: Male

DRUGS (3)
  1. ALLOPURINOL [Suspect]
     Active Substance: ALLOPURINOL
     Indication: Product used for unknown indication
     Dosage: FREQUENCY : 3 TIMES A DAY;?
     Dates: start: 20140709, end: 20140715
  2. IBUPROFEN [Suspect]
     Active Substance: IBUPROFEN
  3. DEPAKENE [Suspect]
     Active Substance: VALPROIC ACID

REACTIONS (6)
  - Stevens-Johnson syndrome [None]
  - Pneumonia [None]
  - Renal failure [None]
  - Oral disorder [None]
  - Dermatitis bullous [None]
  - Product use issue [None]

NARRATIVE: CASE EVENT DATE: 20140709
